FAERS Safety Report 5162516-2 (Version None)
Quarter: 2006Q4

REPORT INFORMATION
  Report Type: 
  Country: None (occurrence: None)
  Receive Date: 20061201
  Receipt Date: 20061121
  Transmission Date: 20070319
  Serious: Yes (Other)
  Sender: FDA-Public Use
  Company Number: US-ROCHE-472745

PATIENT
  Sex: Female

DRUGS (1)
  1. ISOTRETINOIN [Suspect]
     Dosage: ISOTRETINOIN TRADE NAME UNKNOWN
     Route: 065
     Dates: start: 20050915, end: 20051115

REACTIONS (1)
  - DEAFNESS UNILATERAL [None]
